FAERS Safety Report 20371414 (Version 3)
Quarter: 2022Q3

REPORT INFORMATION
  Report Type: Report from Study
  Country: FR (occurrence: FR)
  Receive Date: 20220124
  Receipt Date: 20220801
  Transmission Date: 20221027
  Serious: Yes (Hospitalization, Other)
  Sender: FDA-Public Use
  Company Number: FR-JNJFOC-20220125059

PATIENT
  Age: 77 Year
  Sex: Male

DRUGS (6)
  1. SPRAVATO [Suspect]
     Active Substance: ESKETAMINE
     Indication: Depression
     Dates: start: 20210312, end: 20210312
  2. SPRAVATO [Suspect]
     Active Substance: ESKETAMINE
     Dates: start: 20210323
  3. SPRAVATO [Suspect]
     Active Substance: ESKETAMINE
     Dates: start: 20210325, end: 20210329
  4. SPRAVATO [Suspect]
     Active Substance: ESKETAMINE
     Dosage: FINALLY STOPPED ON 04-NOV-2021
     Dates: start: 20210401, end: 20210419
  5. LITHIUM [Concomitant]
     Active Substance: LITHIUM
     Indication: Drug therapy
  6. VENLAFAXINE [Concomitant]
     Active Substance: VENLAFAXINE HYDROCHLORIDE

REACTIONS (3)
  - Depression [Recovered/Resolved]
  - Bipolar disorder [Unknown]
  - Drug ineffective [Unknown]

NARRATIVE: CASE EVENT DATE: 20211022
